FAERS Safety Report 19609030 (Version 1)
Quarter: 2021Q3

REPORT INFORMATION
  Report Type: Spontaneous
  Country: US (occurrence: US)
  Receive Date: 20210725
  Receipt Date: 20210725
  Transmission Date: 20211014
  Serious: Yes (Other)
  Sender: FDA-Public Use
  Company Number: None

PATIENT
  Age: 53 Year
  Sex: Female
  Weight: 74.25 kg

DRUGS (7)
  1. ALBUTERA INHALER [Concomitant]
  2. BLACK QOHASH [Concomitant]
  3. TUMERIC [Concomitant]
     Active Substance: HERBALS\TURMERIC
  4. COENZYME Q10 [Concomitant]
     Active Substance: DIETARY SUPPLEMENT\UBIDECARENONE
  5. CALCIUM [Concomitant]
     Active Substance: CALCIUM
  6. DOTAREM [Suspect]
     Active Substance: GADOTERATE MEGLUMINE
     Indication: X-RAY WITH CONTRAST
     Dosage: ?          OTHER FREQUENCY:ONE TIME INJECTION;?
     Route: 042
     Dates: start: 20210716, end: 20210716
  7. ELIDEL [Concomitant]
     Active Substance: PIMECROLIMUS

REACTIONS (4)
  - Dizziness [None]
  - Headache [None]
  - Pain in extremity [None]
  - Myalgia [None]

NARRATIVE: CASE EVENT DATE: 20210716
